FAERS Safety Report 7605714-8 (Version None)
Quarter: 2011Q3

REPORT INFORMATION
  Report Type: 
  Country: None (occurrence: None)
  Receive Date: 20110713
  Receipt Date: 20110708
  Transmission Date: 20111222
  Serious: Yes (Death)
  Sender: FDA-Public Use
  Company Number: US-PFIZER INC-2011154304

PATIENT
  Sex: Male

DRUGS (1)
  1. SUTENT [Suspect]
     Dosage: 25 MG, CYCLIC EVERY OTHER DAY X 4 WEEKS EVERY 6 WEEKS
     Route: 048
     Dates: start: 20090403, end: 20110519

REACTIONS (1)
  - DEATH [None]
